FAERS Safety Report 4788922-3 (Version None)
Quarter: 2005Q4

REPORT INFORMATION
  Report Type: 
  Country: None (occurrence: None)
  Receive Date: 20051004
  Receipt Date: 20050823
  Transmission Date: 20060501
  Serious: Yes (Hospitalization)
  Sender: FDA-Public Use
  Company Number: 6016992

PATIENT
  Age: 42 Year
  Sex: Female

DRUGS (5)
  1. EUTHYROX 50 (0,05 MG, TABLET (LEVOTHYROXINE SODIUM) [Suspect]
     Dosage: 50 MCG(50 MCG, 1 IN 1 D), ORAL; LONG TERM
     Route: 048
  2. NOVOTHYRAL (LEVOTHYROXINE SODIUM, LIOTHYRONINE SODIUM) [Suspect]
     Dosage: 50 MCG (50 MCG, 1 IN 1 D),  ORAL; LONG TERMN
     Route: 048
  3. BRUFEN (IBUPROFEN) [Suspect]
     Dosage: 800 MG (800 MG, 1 IN 1 D), ORAL
     Route: 048
     Dates: start: 20050201, end: 20050201
  4. OMEPRAZOLE [Suspect]
     Dosage: 40 MG (40 MG, 1 IN 1 D), ORAL
     Route: 048
     Dates: start: 20050201, end: 20050201
  5. CERAZETTE (FILM-COATED TABLET ) (DESOGESTREL) [Concomitant]

REACTIONS (6)
  - ARTHROPOD BITE [None]
  - ECZEMA [None]
  - PEMPHIGOID [None]
  - SKIN LESION [None]
  - SKIN OEDEMA [None]
  - TOXIC SKIN ERUPTION [None]
